FAERS Safety Report 10228934 (Version 1)
Quarter: 2014Q2

REPORT INFORMATION
  Report Type: Spontaneous
  Country: US (occurrence: US)
  Receive Date: 20140610
  Receipt Date: 20140610
  Transmission Date: 20141212
  Serious: Yes (Hospitalization)
  Sender: FDA-Public Use
  Company Number: US-GLAXOSMITHKLINE-A1075693A

PATIENT
  Sex: Female

DRUGS (12)
  1. ADVAIR [Suspect]
     Indication: CHRONIC OBSTRUCTIVE PULMONARY DISEASE
     Dosage: 1PUFF TWICE PER DAY
     Route: 055
     Dates: start: 2004
  2. HEPARIN [Suspect]
     Indication: PRODUCT USED FOR UNKNOWN INDICATION
     Route: 065
  3. ALENDRONATE [Concomitant]
  4. LISINOPRIL [Concomitant]
  5. DICLOFENAC [Concomitant]
  6. DILAUDID [Concomitant]
  7. CALCIUM [Concomitant]
  8. MULTIVITAMIN [Concomitant]
  9. GLUCOSAMINE/CHONDROITIN [Concomitant]
  10. TYLENOL PM [Concomitant]
  11. PAPAYA ENZYME [Concomitant]
  12. HEPARIN FLUSH [Concomitant]

REACTIONS (17)
  - Lumbar vertebral fracture [Unknown]
  - Hip fracture [Unknown]
  - Hip surgery [Unknown]
  - Thoracic vertebral fracture [Unknown]
  - Cervical vertebral fracture [Unknown]
  - Spinal compression fracture [Unknown]
  - Blindness [Unknown]
  - Eye haemorrhage [Unknown]
  - Pneumonia [Unknown]
  - Mycobacterium avium complex infection [Unknown]
  - Central venous catheterisation [Unknown]
  - Osteoporosis [Unknown]
  - Feeling abnormal [Unknown]
  - Platelet count decreased [Unknown]
  - Retinal scar [Unknown]
  - Anaemia [Unknown]
  - Balance disorder [Unknown]
